FAERS Safety Report 4949485-2 (Version None)
Quarter: 2006Q1

REPORT INFORMATION
  Report Type: 
  Country: None (occurrence: None)
  Receive Date: 20060315
  Receipt Date: 20060222
  Transmission Date: 20060701
  Serious: Yes (Hospitalization)
  Sender: FDA-Public Use
  Company Number: US200602004479

PATIENT
  Age: 6 Year
  Sex: Male

DRUGS (2)
  1. ZYPREXA [Suspect]
     Dosage: 25 MG,
  2. STRATTERA [Concomitant]

REACTIONS (3)
  - DROOLING [None]
  - DYSKINESIA [None]
  - MEDICATION ERROR [None]
